FAERS Safety Report 14983656 (Version 2)
Quarter: 2018Q3

REPORT INFORMATION
  Report Type: Spontaneous
  Country: JP (occurrence: JP)
  Receive Date: 20180607
  Receipt Date: 20180921
  Transmission Date: 20181010
  Serious: Yes (Life-Threatening, Hospitalization)
  Sender: FDA-Public Use
  Company Number: JP-NOVOPROD-109607

PATIENT
  Age: 47 Year
  Sex: Male
  Weight: 94 kg

DRUGS (11)
  1. INSULATARD NPH HUMAN [Suspect]
     Active Substance: INSULIN HUMAN
     Indication: TYPE 2 DIABETES MELLITUS
     Dosage: 10 U, QD
     Route: 058
  2. ACTRAPID [Suspect]
     Active Substance: INSULIN HUMAN
     Indication: TYPE 2 DIABETES MELLITUS
     Dosage: 10 U, TID
     Route: 058
  3. ACTRAPID [Suspect]
     Active Substance: INSULIN HUMAN
     Dosage: 300 U
     Route: 058
     Dates: start: 19980718
  4. INSULATARD NPH HUMAN [Suspect]
     Active Substance: INSULIN HUMAN
     Dosage: 1800 U
     Route: 058
     Dates: start: 19980718
  5. SIMVASTATIN. [Concomitant]
     Active Substance: SIMVASTATIN
     Dosage: UNK
     Route: 065
  6. PENTOXIFYLLINE. [Concomitant]
     Active Substance: PENTOXIFYLLINE
     Dosage: UNK
     Route: 065
  7. AMOBAN [Suspect]
     Active Substance: ZOPICLONE
     Indication: SUICIDE ATTEMPT
     Dosage: 10 TABLETS
     Route: 065
     Dates: start: 19980718
  8. MEXILETINE HYDROCHLORIDE. [Concomitant]
     Active Substance: MEXILETINE HYDROCHLORIDE
     Dosage: UNK
     Route: 065
  9. CLONAZEPAM. [Concomitant]
     Active Substance: CLONAZEPAM
     Dosage: UNK
     Route: 065
  10. INSULATARD NPH HUMAN [Suspect]
     Active Substance: INSULIN HUMAN
     Dosage: UNK
     Route: 058
  11. HALCION [Suspect]
     Active Substance: TRIAZOLAM
     Indication: SUICIDE ATTEMPT
     Dosage: 8 TABLETS
     Route: 065
     Dates: start: 19980718

REACTIONS (3)
  - Intentional overdose [Unknown]
  - Suicide attempt [Recovered/Resolved]
  - Hypoglycaemic coma [Recovered/Resolved]

NARRATIVE: CASE EVENT DATE: 19980718
